FAERS Safety Report 4334060-3 (Version None)
Quarter: 2004Q2

REPORT INFORMATION
  Report Type: 
  Country: None (occurrence: None)
  Receive Date: 20040402
  Receipt Date: 20040323
  Transmission Date: 20050107
  Serious: Yes (Hospitalization, Other)
  Sender: FDA-Public Use
  Company Number: 2004019671

PATIENT
  Age: 68 Year
  Sex: Male

DRUGS (7)
  1. ZOXAN LP (DOXAZOSIN) [Suspect]
     Indication: ILL-DEFINED DISORDER
     Dosage: (DAILY), ORAL
     Route: 048
     Dates: start: 20040202, end: 20040213
  2. BACTRIM [Suspect]
     Indication: ILL-DEFINED DISORDER
     Dosage: (DASILY), INTRAMUSCULAR
     Route: 030
     Dates: start: 20040202, end: 20040213
  3. SPIRONOLACTONE [Concomitant]
  4. URAPIDIL (URAPIDIL) [Concomitant]
  5. DIAZEPAM [Concomitant]
  6. OXAZEPAM [Concomitant]
  7. BISOPROLOL FUMARATE [Concomitant]

REACTIONS (5)
  - HAEMOGLOBIN DECREASED [None]
  - NEUTROPHIL COUNT DECREASED [None]
  - PLATELET COUNT DECREASED [None]
  - STEVENS-JOHNSON SYNDROME [None]
  - WHITE BLOOD CELL COUNT DECREASED [None]
